FAERS Safety Report 10226432 (Version 1)
Quarter: 2014Q2

REPORT INFORMATION
  Report Type: Spontaneous
  Country: US (occurrence: US)
  Receive Date: 20140609
  Receipt Date: 20140609
  Transmission Date: 20141212
  Serious: No
  Sender: FDA-Public Use
  Company Number: US-AMGEN INC.-USASP2013069342

PATIENT
  Age: 16 Year
  Sex: Female
  Weight: 49.5 kg

DRUGS (3)
  1. PROCRIT [Suspect]
     Indication: ANAEMIA
     Dosage: 4000 UNIT, 3 TIMES/WK
     Route: 058
     Dates: start: 201309
  2. CALCITRIOL [Concomitant]
     Dosage: UNK
  3. BICARBONATE [Concomitant]
     Dosage: UNK
     Route: 048

REACTIONS (1)
  - Injection site pain [Recovered/Resolved]
